FAERS Safety Report 15549719 (Version 1)
Quarter: 2018Q4

REPORT INFORMATION
  Report Type: Spontaneous
  Country: US (occurrence: US)
  Receive Date: 20181025
  Receipt Date: 20181025
  Transmission Date: 20190205
  Serious: No
  Sender: FDA-Public Use
  Company Number: US-ROCHE-2202797

PATIENT
  Age: 66 Year
  Sex: Female
  Weight: 49.03 kg

DRUGS (5)
  1. MYCOCIDE NS (BENZALKONIUM CHLORIDE) [Suspect]
     Active Substance: BENZALKONIUM CHLORIDE
     Indication: FUNGAL SKIN INFECTION
     Route: 065
  2. MYCOCIDE NS (BENZALKONIUM CHLORIDE) [Suspect]
     Active Substance: BENZALKONIUM CHLORIDE
     Indication: ONYCHOMYCOSIS
  3. OCREVUS [Suspect]
     Active Substance: OCRELIZUMAB
     Indication: PRIMARY PROGRESSIVE MULTIPLE SCLEROSIS
     Route: 065
     Dates: start: 20170815
  4. MYCOCIDE NS (BENZALKONIUM CHLORIDE) [Suspect]
     Active Substance: BENZALKONIUM CHLORIDE
     Indication: ONYCHOMYCOSIS
  5. WOODWARDS MYCOCIDE CLINICAL NS [Suspect]
     Active Substance: TOLNAFTATE

REACTIONS (3)
  - Osteoporosis [Not Recovered/Not Resolved]
  - Onychomycosis [Not Recovered/Not Resolved]
  - Hypersensitivity [Unknown]

NARRATIVE: CASE EVENT DATE: 201712
